FAERS Safety Report 4727471-5 (Version None)
Quarter: 2005Q3

REPORT INFORMATION
  Report Type: 
  Country: None (occurrence: None)
  Receive Date: 20050727
  Receipt Date: 20050727
  Transmission Date: 20060218
  Serious: Yes (Hospitalization)
  Sender: FDA-Public Use
  Company Number: None

PATIENT
  Age: 30 Year
  Sex: Female
  Weight: 75.2971 kg

DRUGS (6)
  1. AZITHROMYCIN [Suspect]
     Dosage: DOSE UNKNOWN, PO DAILY
     Route: 048
  2. PREDNISONE [Concomitant]
  3. PRENATAL VITAMINS [Concomitant]
  4. CHORIONIC GONADOTROPIN [Concomitant]
  5. LUPRON [Concomitant]
  6. FOLLISTIM [Concomitant]

REACTIONS (4)
  - ANGIONEUROTIC OEDEMA [None]
  - DRUG HYPERSENSITIVITY [None]
  - DYSPHAGIA [None]
  - SWOLLEN TONGUE [None]
